FAERS Safety Report 10525441 (Version 2)
Quarter: 2014Q4

REPORT INFORMATION
  Report Type: Report from Study
  Country: BR (occurrence: BR)
  Receive Date: 20141017
  Receipt Date: 20141022
  Transmission Date: 20150528
  Serious: Yes (Other)
  Sender: FDA-Public Use
  Company Number: PHHY2014BR132561

PATIENT
  Age: 74 Year
  Sex: Female
  Weight: 69 kg

DRUGS (22)
  1. ATENOLOL. [Concomitant]
     Active Substance: ATENOLOL
     Indication: HYPERTENSION
     Dosage: 50 MG, QD
     Route: 065
  2. ALPRAZOLAM. [Concomitant]
     Active Substance: ALPRAZOLAM
     Indication: STRESS
  3. CABERGOLINA [Suspect]
     Active Substance: CABERGOLINE
     Indication: ACROMEGALY
     Dosage: 1 DF, PER WEEK
     Route: 065
  4. SANDOSTATIN LAR DEPOT [Suspect]
     Active Substance: OCTREOTIDE ACETATE
     Dosage: 30 MG (1 DF), EVERY 28 DAYS
     Route: 065
  5. CABERGOLINA [Suspect]
     Active Substance: CABERGOLINE
     Dosage: 2 DF, PER WEEK
     Route: 065
  6. ATENOLOL. [Concomitant]
     Active Substance: ATENOLOL
     Dosage: 100 MG, QD
     Route: 065
  7. MODURETIC 5-50 [Concomitant]
     Active Substance: AMILORIDE HYDROCHLORIDE\HYDROCHLOROTHIAZIDE
     Indication: DIURETIC THERAPY
  8. AMLODIPINA//AMLODIPINE [Concomitant]
     Indication: HYPERTENSION
     Dosage: 1 DF, Q12H
     Route: 065
  9. ALPRAZOLAM. [Concomitant]
     Active Substance: ALPRAZOLAM
     Indication: INSOMNIA
     Dosage: 1 DF, AT BEDTIME
  10. CABERGOLINA [Suspect]
     Active Substance: CABERGOLINE
     Dosage: 3 DF, QD
     Route: 065
  11. CABERGOLINA [Suspect]
     Active Substance: CABERGOLINE
     Dosage: 5 DF, QD
     Route: 065
  12. METFORMIN [Suspect]
     Active Substance: METFORMIN HYDROCHLORIDE
     Dosage: 3 DF, QD
     Route: 065
  13. CABERGOLINA [Suspect]
     Active Substance: CABERGOLINE
     Dosage: 6 DF, QD
     Route: 065
  14. GALVUS [Suspect]
     Active Substance: VILDAGLIPTIN
     Indication: DIABETES MELLITUS
     Dosage: 2 DF, QD
     Route: 065
  15. GLIMEPIRIDA [Suspect]
     Active Substance: GLIMEPIRIDE
     Dosage: 2 MG (1 DF), PER DAY
     Route: 065
  16. AVASTIN [Concomitant]
     Active Substance: BEVACIZUMAB
     Indication: VISUAL IMPAIRMENT
     Dosage: 1 DF, UNK
     Route: 065
     Dates: start: 20140216, end: 20140216
  17. MODURETIC 5-50 [Concomitant]
     Active Substance: AMILORIDE HYDROCHLORIDE\HYDROCHLOROTHIAZIDE
     Indication: HYPERTENSION
     Dosage: 1 DF, QD
     Route: 065
  18. CABERGOLINA [Suspect]
     Active Substance: CABERGOLINE
     Dosage: 6 DF, PER WEEK
  19. PURAN [Concomitant]
     Active Substance: LEVOTHYROXINE SODIUM
     Indication: HORMONE REPLACEMENT THERAPY
     Dosage: 1 DF, FASTING PER DAY
     Route: 065
  20. SANDOSTATIN LAR DEPOT [Suspect]
     Active Substance: OCTREOTIDE ACETATE
     Indication: ACROMEGALY
     Dosage: 20 MG (1 DF), EVERY 28 DAYS
     Route: 065
  21. CABERGOLINA [Suspect]
     Active Substance: CABERGOLINE
     Dosage: 4 DF, QD
     Route: 065
  22. GLIMEPIRIDA [Suspect]
     Active Substance: GLIMEPIRIDE
     Indication: DIABETES MELLITUS
     Dosage: 6 MG (1 DF), PER DAY
     Route: 065
     Dates: start: 2013

REACTIONS (12)
  - Decreased appetite [Unknown]
  - Dysuria [Unknown]
  - Limb discomfort [Unknown]
  - Weight decreased [Unknown]
  - Gait disturbance [Unknown]
  - Pain in extremity [Unknown]
  - Venous occlusion [Unknown]
  - Diabetes mellitus [Recovering/Resolving]
  - Blood pressure decreased [Unknown]
  - Hypokinesia [Unknown]
  - Pain [Unknown]
  - Vision blurred [Unknown]

NARRATIVE: CASE EVENT DATE: 201303
